FAERS Safety Report 20583258 (Version 3)
Quarter: 2022Q2

REPORT INFORMATION
  Report Type: Report from Study
  Country: US (occurrence: US)
  Receive Date: 20220311
  Receipt Date: 20220517
  Transmission Date: 20220721
  Serious: Yes (Hospitalization, Other)
  Sender: FDA-Public Use
  Company Number: US-BIOVITRUM-2022US03245

PATIENT
  Age: 53 Year
  Sex: Female

DRUGS (2)
  1. KINERET [Suspect]
     Active Substance: ANAKINRA
     Indication: Behcet^s syndrome
     Route: 058
     Dates: start: 20220217
  2. KINERET [Suspect]
     Active Substance: ANAKINRA
     Dates: start: 20151015

REACTIONS (10)
  - Encephalopathy [Unknown]
  - Mental fatigue [Not Recovered/Not Resolved]
  - Mastitis [Unknown]
  - Eye discharge [Unknown]
  - Discharge [Unknown]
  - Ear infection [Unknown]
  - Illness [Unknown]
  - Adverse event [Unknown]
  - Product dose omission issue [Unknown]
  - Off label use [Unknown]

NARRATIVE: CASE EVENT DATE: 20220201
